FAERS Safety Report 6096106-4 (Version None)
Quarter: 2009Q1

REPORT INFORMATION
  Report Type: 
  Country: None (occurrence: None)
  Receive Date: 20090227
  Receipt Date: 20080904
  Transmission Date: 20090719
  Serious: No
  Sender: FDA-Public Use
  Company Number: A0745944A

PATIENT
  Age: 52 Year
  Sex: Female

DRUGS (10)
  1. LAMICTAL [Suspect]
     Dosage: 150MG PER DAY
     Route: 048
     Dates: start: 20070101
  2. FORTEO [Concomitant]
  3. PREVACID [Concomitant]
  4. EXFORGE [Concomitant]
  5. FLUOXETINE [Concomitant]
  6. MOBIC [Concomitant]
  7. LIBRAX [Concomitant]
  8. ALPRAZOLAM [Concomitant]
  9. ESTRADIOL [Concomitant]
  10. ALLI [Concomitant]

REACTIONS (7)
  - BLOOD ALKALINE PHOSPHATASE INCREASED [None]
  - GRANULOCYTE COUNT DECREASED [None]
  - LABORATORY TEST ABNORMAL [None]
  - MEAN CELL HAEMOGLOBIN INCREASED [None]
  - MEAN CELL VOLUME INCREASED [None]
  - RED BLOOD CELL COUNT DECREASED [None]
  - WHITE BLOOD CELL COUNT DECREASED [None]
